FAERS Safety Report 17702580 (Version 1)
Quarter: 2020Q2

REPORT INFORMATION
  Report Type: Spontaneous
  Country: DE (occurrence: DE)
  Receive Date: 20200423
  Receipt Date: 20200423
  Transmission Date: 20200714
  Serious: Yes (Other)
  Sender: FDA-Public Use
  Company Number: DE-009507513-2004DEU006052

PATIENT
  Age: 81 Year
  Sex: Female

DRUGS (1)
  1. ECURAL MINI [Suspect]
     Active Substance: MOMETASONE
     Indication: BACK PAIN
     Dosage: UNK
     Dates: start: 20200414

REACTIONS (3)
  - Hypoacusis [Unknown]
  - Application site erythema [Unknown]
  - Pain [Unknown]

NARRATIVE: CASE EVENT DATE: 202004
